FAERS Safety Report 8240096-2 (Version None)
Quarter: 2012Q1

REPORT INFORMATION
  Report Type: 
  Country: None (occurrence: None)
  Receive Date: 20120328
  Receipt Date: 20120324
  Transmission Date: 20120608
  Serious: Yes (Other)
  Sender: FDA-Public Use
  Company Number: US-BAYER-2012-029763

PATIENT
  Age: 31 Year
  Sex: Male
  Weight: 82 kg

DRUGS (2)
  1. ALEVE (CAPLET) [Suspect]
     Indication: SUNBURN
     Dosage: UNK
     Route: 048
     Dates: start: 20120323
  2. PRISTIQ [Concomitant]

REACTIONS (1)
  - LIP SWELLING [None]
